FAERS Safety Report 9026024 (Version 1)
Quarter: 2012Q4

REPORT INFORMATION
  Report Type: Spontaneous
  Country: US (occurrence: None)
  Receive Date: 20121214
  Receipt Date: 20121214
  Transmission Date: 20130627
  Serious: Yes (Hospitalization, Disabling)
  Sender: FDA-Public Use
  Company Number: None

PATIENT
  Age: 50 Year
  Sex: Male
  Weight: 81.63 kg

DRUGS (2)
  1. VANCOMYCIN [Suspect]
     Indication: DIABETIC FOOT ULCER
     Route: 042
     Dates: start: 20121121, end: 20121129
  2. PIPERACILLIN-TAZOBACTAM (NO PREF. NAME) [Suspect]
     Indication: DIABETIC FOOT ULCER
     Route: 042
     Dates: start: 20121120, end: 20121129

REACTIONS (1)
  - Renal failure acute [None]
